FAERS Safety Report 22953890 (Version 3)
Quarter: 2024Q1

REPORT INFORMATION
  Report Type: Report from Study
  Country: FR (occurrence: FR)
  Receive Date: 20230918
  Receipt Date: 20240221
  Transmission Date: 20240410
  Serious: Yes (Hospitalization)
  Sender: FDA-Public Use
  Company Number: FR-PFIZER INC-PV202300153568

PATIENT
  Age: 62 Year
  Sex: Male
  Weight: 97 kg

DRUGS (1)
  1. ABROCITINIB [Suspect]
     Active Substance: ABROCITINIB
     Indication: Dermatitis atopic
     Dosage: 100 MG, 1X/DAY
     Route: 048
     Dates: start: 20230516, end: 20230828

REACTIONS (2)
  - Erysipelas [Recovered/Resolved]
  - Streptococcal infection [Recovered/Resolved]

NARRATIVE: CASE EVENT DATE: 20230811
